FAERS Safety Report 9977752 (Version 2)
Quarter: 2014Q1

REPORT INFORMATION
  Report Type: Report from Study
  Country: US (occurrence: US)
  Receive Date: 20140306
  Receipt Date: 20140306
  Transmission Date: 20141002
  Serious: No
  Sender: FDA-Public Use
  Company Number: US-ABBVIE-13P-163-1153768-00

PATIENT
  Age: 48 Year
  Sex: Male

DRUGS (19)
  1. HUMIRA [Suspect]
     Indication: CROHN^S DISEASE
     Dosage: DAY 1 160 MG (4) 40 MG INJECTIONS
     Dates: start: 20130905, end: 20130905
  2. HUMIRA [Suspect]
     Dosage: DAY 15 80 MG (2) 40 MG INJECTIONS
  3. HUMIRA [Suspect]
     Dosage: DAY 29 (1) 40 MG INJECTIONS
  4. AZATHIOPRINE [Concomitant]
     Indication: CROHN^S DISEASE
  5. ENTOCORT [Concomitant]
     Indication: CROHN^S DISEASE
  6. ALLOPURINOL [Concomitant]
     Indication: GOUT
  7. GOLD CREST [Concomitant]
     Indication: GOUT
  8. INDOMETHACIN [Concomitant]
     Indication: GOUT
  9. XANAX [Concomitant]
     Indication: ANXIETY
  10. NEXIUM [Concomitant]
     Indication: GASTROOESOPHAGEAL REFLUX DISEASE
  11. LIPITOR [Concomitant]
     Indication: BLOOD CHOLESTEROL INCREASED
  12. HYDROCODONE [Concomitant]
     Indication: BACK PAIN
  13. ROBAXIN [Concomitant]
     Indication: PRODUCT USED FOR UNKNOWN INDICATION
  14. FLAGYL [Concomitant]
     Indication: ANAL FISTULA
  15. CIPRO [Concomitant]
     Indication: ANAL FISTULA
  16. UNKNOWN MEDICATION [Concomitant]
     Indication: GOUT
  17. UNKNOWN MEDICATION [Concomitant]
     Indication: ANAL FISTULA
  18. VIT D3 [Concomitant]
     Indication: VITAMIN SUPPLEMENTATION
  19. FLINTSTONE [Concomitant]
     Indication: VITAMIN SUPPLEMENTATION

REACTIONS (2)
  - Injection site pain [Not Recovered/Not Resolved]
  - Hypoaesthesia [Not Recovered/Not Resolved]
